FAERS Safety Report 10693382 (Version 1)
Quarter: 2015Q1

REPORT INFORMATION
  Report Type: Spontaneous
  Country: FR (occurrence: FR)
  Receive Date: 20150106
  Receipt Date: 20150106
  Transmission Date: 20150720
  Serious: Yes (Life-Threatening)
  Sender: FDA-Public Use
  Company Number: FR-SA-2015SA000340

PATIENT
  Age: 82 Year
  Sex: Male

DRUGS (6)
  1. CUBICIN [Concomitant]
     Active Substance: DAPTOMYCIN
     Dates: start: 20141210
  2. KARDEGIC [Concomitant]
     Active Substance: ASPIRIN LYSINE
     Dates: start: 20141207
  3. MIDAZOLAM [Concomitant]
     Active Substance: MIDAZOLAM\MIDAZOLAM HYDROCHLORIDE
     Dates: start: 20141206
  4. LOVENOX [Suspect]
     Active Substance: ENOXAPARIN SODIUM
     Route: 065
     Dates: start: 20141208, end: 20141212
  5. SUFENTANIL [Concomitant]
     Active Substance: SUFENTANIL
     Dates: start: 20141206
  6. ESOMEPRAZOLE [Concomitant]
     Active Substance: ESOMEPRAZOLE
     Dosage: 40MG
     Dates: start: 20141206

REACTIONS (2)
  - Haemorrhage [Recovered/Resolved]
  - Haemodynamic instability [Recovered/Resolved]

NARRATIVE: CASE EVENT DATE: 20141212
